FAERS Safety Report 14515600 (Version 1)
Quarter: 2018Q1

REPORT INFORMATION
  Report Type: Spontaneous
  Country: US (occurrence: US)
  Receive Date: 20180210
  Receipt Date: 20180210
  Transmission Date: 20180509
  Serious: No
  Sender: FDA-Public Use
  Company Number: US-TEVA-2018-US-846991

PATIENT
  Sex: Female

DRUGS (1)
  1. DULOXETINE. [Suspect]
     Active Substance: DULOXETINE
     Indication: NECK PAIN
     Dosage: DELAYED-RELEASE CAPSULES
     Route: 065

REACTIONS (6)
  - Vertigo [Unknown]
  - Headache [Unknown]
  - Tremor [Unknown]
  - Anxiety [Unknown]
  - Asthenia [Unknown]
  - Insomnia [Unknown]
